FAERS Safety Report 18661748 (Version 1)
Quarter: 2020Q4

REPORT INFORMATION
  Report Type: Report from Study
  Country: RS (occurrence: RS)
  Receive Date: 20201224
  Receipt Date: 20201224
  Transmission Date: 20210114
  Serious: Yes (Other)
  Sender: FDA-Public Use
  Company Number: RS-BRISTOL-MYERS SQUIBB COMPANY-BMS-2020-109462

PATIENT
  Sex: Female

DRUGS (2)
  1. PRAVASTATIN SODIUM. [Suspect]
     Active Substance: PRAVASTATIN SODIUM
     Indication: PLACENTAL DISORDER
     Dosage: 40 MILLIGRAM, QD
     Route: 048
  2. L-ARGININE [ARGININE] [Suspect]
     Active Substance: ARGININE
     Indication: PLACENTAL DISORDER
     Dosage: 0.5 GRAM, TID
     Route: 048

REACTIONS (4)
  - Premature delivery [Unknown]
  - Intentional product use issue [Unknown]
  - Pre-eclampsia [Unknown]
  - Maternal exposure during pregnancy [Recovered/Resolved]
